FAERS Safety Report 18202428 (Version 1)
Quarter: 2020Q3

REPORT INFORMATION
  Report Type: Spontaneous
  Country: US (occurrence: US)
  Receive Date: 20200827
  Receipt Date: 20200827
  Transmission Date: 20201103
  Serious: No
  Sender: FDA-Public Use
  Company Number: None

PATIENT
  Sex: Female

DRUGS (1)
  1. PRAZOSIN. [Suspect]
     Active Substance: PRAZOSIN

REACTIONS (6)
  - Documented hypersensitivity to administered product [None]
  - Chapped lips [None]
  - Drug hypersensitivity [None]
  - Tongue discomfort [None]
  - Skin irritation [None]
  - Burning mouth syndrome [None]
